FAERS Safety Report 8112275-6 (Version None)
Quarter: 2012Q1

REPORT INFORMATION
  Report Type: 
  Country: None (occurrence: None)
  Receive Date: 20120203
  Receipt Date: 20120203
  Transmission Date: 20120608
  Serious: Yes (Hospitalization)
  Sender: FDA-Public Use
  Company Number: None

PATIENT
  Sex: Male
  Weight: 113 kg

DRUGS (15)
  1. ERAXIS [Suspect]
     Indication: SYSTEMIC CANDIDA
     Dosage: 100.0 MG
     Route: 042
     Dates: start: 20111214, end: 20111215
  2. VANCOMYCIN [Concomitant]
     Route: 051
  3. HYDROMORPHONE HCL [Concomitant]
  4. ERAXIS [Concomitant]
     Dosage: 200 MG
     Route: 042
     Dates: start: 20111213, end: 20111213
  5. ATORVASTATIN [Concomitant]
     Route: 048
  6. ESOMEPRAZOLE [Concomitant]
     Route: 048
  7. TOBRAMYCIN [Concomitant]
     Route: 051
  8. ASPIRIN [Concomitant]
     Route: 048
  9. EZETIMIBE [Concomitant]
     Route: 048
  10. DIPHENHYDRAMINE HCL [Concomitant]
  11. INSULIN LISPRO [Concomitant]
     Route: 051
  12. METOPROLOL [Concomitant]
     Route: 048
  13. FERROUS SULFATE TAB [Concomitant]
     Route: 048
  14. ZOSYN [Concomitant]
  15. ACETAMINOPHEN [Concomitant]

REACTIONS (2)
  - HYPOFIBRINOGENAEMIA [None]
  - COAGULOPATHY [None]
